FAERS Safety Report 5413585-3 (Version None)
Quarter: 2007Q3

REPORT INFORMATION
  Report Type: 
  Country: None (occurrence: None)
  Receive Date: 20070814
  Receipt Date: 20070810
  Transmission Date: 20080115
  Serious: Yes (Hospitalization)
  Sender: FDA-Public Use
  Company Number: US-RB-007674-07

PATIENT
  Sex: Female

DRUGS (4)
  1. SUBOXONE [Suspect]
     Route: 064
     Dates: start: 20070305, end: 20070326
  2. SUBOXONE [Suspect]
     Route: 064
     Dates: start: 20070327, end: 20070501
  3. SUBOXONE [Suspect]
     Route: 064
     Dates: start: 20070502, end: 20070718
  4. METHADONE HCL [Concomitant]
     Indication: DRUG WITHDRAWAL SYNDROME NEONATAL
     Dosage: NEONATE GIVEN 2 DOSES. ACTUAL DOSE AMOUNT IS UNKNOWN.
     Route: 048

REACTIONS (7)
  - BODY TEMPERATURE INCREASED [None]
  - CRYING [None]
  - DIARRHOEA [None]
  - DRUG WITHDRAWAL SYNDROME NEONATAL [None]
  - INFANTILE SPITTING UP [None]
  - MECONIUM IN AMNIOTIC FLUID [None]
  - SNEEZING [None]
